FAERS Safety Report 23574632 (Version 1)
Quarter: 2024Q1

REPORT INFORMATION
  Report Type: Spontaneous
  Country: ES (occurrence: ES)
  Receive Date: 20240228
  Receipt Date: 20240228
  Transmission Date: 20240409
  Serious: Yes (Other)
  Sender: FDA-Public Use
  Company Number: None

PATIENT
  Age: 41 Year
  Sex: Female

DRUGS (3)
  1. SERTRALINE [Suspect]
     Active Substance: SERTRALINE HYDROCHLORIDE
     Indication: Adjustment disorder with depressed mood
     Dates: start: 20160223
  2. PROGRAF [Suspect]
     Active Substance: TACROLIMUS
     Indication: Scleroderma
     Dosage: STARTS IN MAY 2023 WITH A DOSE OF 2MG/12 HOURS
     Dates: start: 20230606
  3. MONTELUKAST [Suspect]
     Active Substance: MONTELUKAST SODIUM
     Indication: Rhinitis allergic
     Dates: start: 20230428, end: 20231124

REACTIONS (3)
  - Gingivitis [Recovering/Resolving]
  - Aphthous ulcer [Recovering/Resolving]
  - Hallucination, visual [Recovering/Resolving]

NARRATIVE: CASE EVENT DATE: 20230913
